FAERS Safety Report 6522566-8 (Version None)
Quarter: 2009Q4

REPORT INFORMATION
  Report Type: 
  Country: None (occurrence: None)
  Receive Date: 20091229
  Receipt Date: 20091229
  Transmission Date: 20100525
  Serious: Yes (Hospitalization)
  Sender: FDA-Public Use
  Company Number: None

PATIENT
  Age: 55 Year
  Sex: Male
  Weight: 116 kg

DRUGS (1)
  1. DICLOFENAC SODIUM [Suspect]
     Indication: PAIN
     Dosage: 50 MG BID PO
     Route: 048
     Dates: start: 20091022, end: 20091223

REACTIONS (7)
  - ANAEMIA [None]
  - CHEST PAIN [None]
  - DIARRHOEA [None]
  - DYSPNOEA [None]
  - GASTRIC HAEMORRHAGE [None]
  - LARGE INTESTINAL ULCER [None]
  - NASAL CONGESTION [None]
